FAERS Safety Report 7392558-8 (Version None)
Quarter: 2011Q1

REPORT INFORMATION
  Report Type: 
  Country: None (occurrence: None)
  Receive Date: 20110324
  Receipt Date: 20110315
  Transmission Date: 20110831
  Serious: Yes (Hospitalization)
  Sender: FDA-Public Use
  Company Number: 2011MA002452

PATIENT
  Age: 3 Year
  Sex: Male
  Weight: 19 kg

DRUGS (2)
  1. VALPROIC ACID [Concomitant]
  2. CLONIDINE HCL [Suspect]
     Indication: SLEEP TERROR
     Dosage: 0.1 MG; OD; PO
     Route: 048

REACTIONS (14)
  - OXYGEN SATURATION DECREASED [None]
  - OVERDOSE [None]
  - DRY MOUTH [None]
  - ABASIA [None]
  - IRRITABILITY [None]
  - DYSPNOEA [None]
  - INSOMNIA [None]
  - SINUS BRADYCARDIA [None]
  - AGITATION [None]
  - TOXICITY TO VARIOUS AGENTS [None]
  - GAIT DISTURBANCE [None]
  - DEPRESSED LEVEL OF CONSCIOUSNESS [None]
  - BLOOD PRESSURE INCREASED [None]
  - CONVULSION [None]
